FAERS Safety Report 9301222 (Version 2)
Quarter: 2013Q2

REPORT INFORMATION
  Report Type: Report from Study
  Country: CA (occurrence: CA)
  Receive Date: 20130521
  Receipt Date: 20130531
  Transmission Date: 20140414
  Serious: Yes (Other)
  Sender: FDA-Public Use
  Company Number: CA-ABBOTT-13P-028-1051875-00

PATIENT
  Sex: Male
  Weight: 80.81 kg

DRUGS (3)
  1. LUPRON DEPOT [Suspect]
     Indication: PROSTATE CANCER
     Route: 030
     Dates: start: 20130114
  2. FLOMAX [Concomitant]
     Indication: PRODUCT USED FOR UNKNOWN INDICATION
  3. RABEPRAZOLE [Concomitant]
     Indication: PRODUCT USED FOR UNKNOWN INDICATION

REACTIONS (6)
  - Bladder cancer [Unknown]
  - Neoplasm malignant [Unknown]
  - Hot flush [Unknown]
  - Asthenia [Unknown]
  - Insomnia [Unknown]
  - Weight increased [Unknown]
